FAERS Safety Report 13595345 (Version 3)
Quarter: 2017Q4

REPORT INFORMATION
  Report Type: Spontaneous
  Country: US (occurrence: US)
  Receive Date: 20170531
  Receipt Date: 20171110
  Transmission Date: 20180320
  Serious: Yes (Death, Life-Threatening, Hospitalization, Other)
  Sender: FDA-Public Use
  Company Number: US-CIPLA LTD.-2017US09527

PATIENT

DRUGS (25)
  1. CLONAZEPAM. [Suspect]
     Active Substance: CLONAZEPAM
     Indication: SEIZURE
     Dosage: 2 MG, QID
     Route: 065
  2. IMMUNOGLOBULIN IV [Suspect]
     Active Substance: HUMAN IMMUNOGLOBULIN G
     Indication: SEIZURE
     Dosage: UNK
     Route: 065
  3. LEVETIRACETAM. [Suspect]
     Active Substance: LEVETIRACETAM
     Indication: STATUS EPILEPTICUS
     Dosage: 1500 MG, TID
     Route: 048
  4. HALOPERIDOL. [Suspect]
     Active Substance: HALOPERIDOL
     Indication: AGITATION
     Dosage: UNK
     Route: 065
  5. LACOSAMIDE. [Suspect]
     Active Substance: LACOSAMIDE
     Indication: STATUS EPILEPTICUS
     Dosage: 200 MG, TID
     Route: 048
  6. SAGE-457 [Suspect]
     Active Substance: BREXANOLONE
     Indication: SEIZURE
     Dosage: UNK
     Route: 065
  7. RUFINAMIDE [Suspect]
     Active Substance: RUFINAMIDE
     Indication: SEIZURE
     Dosage: 1200 MG, BID
     Route: 065
  8. LACOSAMIDE. [Suspect]
     Active Substance: LACOSAMIDE
     Indication: SEIZURE
     Dosage: 300 MG, BID
     Route: 065
  9. PHENYTOIN. [Suspect]
     Active Substance: PHENYTOIN
     Indication: SEIZURE
     Dosage: 325 MG, TID
     Route: 065
  10. CLORAZEPATE [Suspect]
     Active Substance: CLORAZEPATE DIPOTASSIUM
     Indication: STATUS EPILEPTICUS
     Dosage: 15 MG, BID
     Route: 048
  11. BUPRENORPHINE. [Suspect]
     Active Substance: BUPRENORPHINE
     Dosage: UNK
     Route: 065
  12. ZONISAMIDE. [Suspect]
     Active Substance: ZONISAMIDE
     Indication: STATUS EPILEPTICUS
     Dosage: 300 MG, BID
     Route: 048
  13. LORAZEPAM. [Suspect]
     Active Substance: LORAZEPAM
     Indication: SEIZURE
     Dosage: 2 MG, MULTIPLE DOSES
     Route: 042
  14. QUETIAPINE. [Suspect]
     Active Substance: QUETIAPINE
     Indication: AGITATION
     Dosage: UNK, SEVERAL DOSES
     Route: 065
  15. PENTOBARBITAL. [Suspect]
     Active Substance: PENTOBARBITAL
     Indication: SEIZURE
     Dosage: UNK
     Route: 065
  16. ZONISAMIDE. [Suspect]
     Active Substance: ZONISAMIDE
     Indication: SEIZURE
     Dosage: 200 MG, TID
     Route: 065
  17. TOPIRAMATE. [Suspect]
     Active Substance: TOPIRAMATE
     Indication: SEIZURE
     Dosage: 100 MG, BID
     Route: 050
  18. PHENOBARBITAL. [Suspect]
     Active Substance: PHENOBARBITAL
     Indication: SEIZURE
     Dosage: 550 MG, TID
     Route: 050
  19. ALPRAZOLAM. [Suspect]
     Active Substance: ALPRAZOLAM
     Indication: POISONING
     Dosage: UNK
     Route: 065
  20. KETAMINE [Suspect]
     Active Substance: KETAMINE
     Indication: SEIZURE
     Dosage: UNK
  21. FELBAMATE. [Suspect]
     Active Substance: FELBAMATE
     Indication: SEIZURE
     Dosage: 800 MG, TID
     Route: 065
  22. CLOBAZAM [Suspect]
     Active Substance: CLOBAZAM
     Indication: SEIZURE
     Dosage: 20 MG, TID
     Route: 065
  23. SYNTHETIC CANNABINOID [Suspect]
     Active Substance: UNSPECIFIED INGREDIENT
     Dosage: UNK
     Route: 065
  24. LEVETIRACETAM. [Suspect]
     Active Substance: LEVETIRACETAM
     Indication: SEIZURE
     Dosage: 2000 MG, TID
     Route: 065
  25. PHENOBARBITAL. [Suspect]
     Active Substance: PHENOBARBITAL
     Indication: STATUS EPILEPTICUS
     Dosage: 400 MG, TID
     Route: 048

REACTIONS (22)
  - Death [Fatal]
  - Acute kidney injury [Unknown]
  - Fall [None]
  - Pneumatosis [Unknown]
  - Urinary incontinence [Unknown]
  - Agitation [Unknown]
  - Gastrointestinal stoma complication [Unknown]
  - Encephalopathy [None]
  - Disease recurrence [Unknown]
  - Pancreatitis acute [Unknown]
  - Unresponsive to stimuli [Unknown]
  - Cardiomyopathy [Unknown]
  - Dialysis [None]
  - Status epilepticus [Unknown]
  - Abdominal distension [Unknown]
  - Respiratory failure [Unknown]
  - Delirium [Unknown]
  - Clostridium difficile infection [Unknown]
  - Small intestinal obstruction [Unknown]
  - Drug ineffective [Unknown]
  - Condition aggravated [Unknown]
  - Sepsis [Unknown]
